FAERS Safety Report 7391385-5 (Version None)
Quarter: 2011Q1

REPORT INFORMATION
  Report Type: 
  Country: None (occurrence: None)
  Receive Date: 20110324
  Receipt Date: 20110315
  Transmission Date: 20110831
  Serious: Yes (Other)
  Sender: FDA-Public Use
  Company Number: 1000019194

PATIENT
  Age: 34 Year
  Sex: Female

DRUGS (1)
  1. DINOPROSTONE (DINOPROSTONE) (VAGINAL INSERT) [Suspect]
     Indication: LABOUR INDUCTION
     Dosage: (10 MG,ONCE),VAGINAL
     Route: 067
     Dates: start: 20110209, end: 20110209

REACTIONS (6)
  - UTERINE CONTRACTIONS ABNORMAL [None]
  - ANXIETY [None]
  - DRUG EXPOSURE DURING PREGNANCY [None]
  - DYSPNOEA [None]
  - PRURITUS GENERALISED [None]
  - VULVOVAGINAL PAIN [None]
